FAERS Safety Report 5933882-2 (Version None)
Quarter: 2008Q4

REPORT INFORMATION
  Report Type: 
  Country: None (occurrence: None)
  Receive Date: 20081029
  Receipt Date: 20081023
  Transmission Date: 20090506
  Serious: Yes (Death)
  Sender: FDA-Public Use
  Company Number: GB-TEVA-179368ISR

PATIENT
  Age: 80 Year
  Sex: Male
  Weight: 56 kg

DRUGS (10)
  1. AZILECT [Suspect]
     Route: 048
     Dates: start: 20080814, end: 20080909
  2. ACETYLSALICYLIC ACID SRT [Concomitant]
     Indication: ATRIAL FIBRILLATION
     Route: 048
  3. BISOPROLOL FUMARATE [Concomitant]
     Indication: MYOCARDIAL ISCHAEMIA
     Route: 048
  4. SINEMET [Concomitant]
     Indication: PARKINSON'S DISEASE
     Dosage: 1 DF
     Route: 048
  5. NITROGLYCERIN [Concomitant]
     Indication: MYOCARDIAL ISCHAEMIA
  6. IPRATROPIUM BROMIDE [Concomitant]
     Indication: RHINORRHOEA
     Route: 045
  7. LACTULOSE [Concomitant]
     Indication: CONSTIPATION
     Route: 048
  8. ACETAMINOPHEN [Concomitant]
     Indication: OSTEOARTHRITIS
     Route: 048
  9. RAMIPRIL [Concomitant]
     Indication: HYPERTENSION
     Route: 048
  10. SIMVASTATIN [Concomitant]
     Indication: HYPERCHOLESTEROLAEMIA
     Route: 048

REACTIONS (3)
  - ANGINA PECTORIS [None]
  - CEREBRAL HAEMORRHAGE [None]
  - CONFUSIONAL STATE [None]
